FAERS Safety Report 21853125 (Version 2)
Quarter: 2023Q1

REPORT INFORMATION
  Report Type: Spontaneous
  Country: KZ (occurrence: KZ)
  Receive Date: 20230112
  Receipt Date: 20230301
  Transmission Date: 20230417
  Serious: Yes (Other)
  Sender: FDA-Public Use
  Company Number: KZ-002147023-NVSC2023KZ005575

PATIENT
  Age: 36 Year
  Sex: Female

DRUGS (9)
  1. AZITHROMYCIN [Suspect]
     Active Substance: AZITHROMYCIN
     Indication: Product used for unknown indication
     Dosage: UNK
     Route: 065
  2. SIRTURO [Suspect]
     Active Substance: BEDAQUILINE FUMARATE
     Indication: Disseminated tuberculosis
     Dosage: 400 MG, UNKNOWN
     Route: 065
     Dates: start: 20180620
  3. SIRTURO [Suspect]
     Active Substance: BEDAQUILINE FUMARATE
     Dosage: 200 MG, TIW
     Route: 065
  4. DELAMANID [Suspect]
     Active Substance: DELAMANID
     Indication: Disseminated tuberculosis
     Dosage: 200 MG, UNKNOWN
     Route: 065
     Dates: start: 20180620
  5. LINEZOLID [Suspect]
     Active Substance: LINEZOLID
     Indication: Disseminated tuberculosis
     Dosage: 300 MG, QD
     Route: 048
     Dates: start: 20180620
  6. LINEZOLID [Suspect]
     Active Substance: LINEZOLID
     Dosage: 600 MG, QD
     Route: 048
  7. CLOFAZIMINE [Suspect]
     Active Substance: CLOFAZIMINE
     Indication: Disseminated tuberculosis
     Dosage: 200 MG, UNKNOWN
     Route: 065
     Dates: start: 20180620
  8. CLOFAZIMINE [Suspect]
     Active Substance: CLOFAZIMINE
     Dosage: 100 MG, UNKNOWN
     Route: 065
  9. CYCLOSERINE [Suspect]
     Active Substance: CYCLOSERINE
     Indication: Disseminated tuberculosis
     Dosage: 750 MG, UNKNOWN
     Route: 065
     Dates: start: 20180620

REACTIONS (3)
  - Premature labour [Unknown]
  - Premature delivery [Unknown]
  - Maternal exposure during pregnancy [Unknown]

NARRATIVE: CASE EVENT DATE: 20180727
